FAERS Safety Report 10066319 (Version 31)
Quarter: 2017Q2

REPORT INFORMATION
  Report Type: Report from Study
  Country: CA (occurrence: CA)
  Receive Date: 20140408
  Receipt Date: 20170619
  Transmission Date: 20170829
  Serious: Yes (Life-Threatening, Hospitalization, Other)
  Sender: FDA-Public Use
  Company Number: PHHY2013CA109321

PATIENT
  Age: 49 Year
  Sex: Male

DRUGS (3)
  1. SANDOSTATIN LAR DEPOT [Suspect]
     Active Substance: OCTREOTIDE ACETATE
     Dosage: 30 MG, QMO (EVERY 4 WEEKS)
     Route: 030
     Dates: start: 20130909
  2. SANDOSTATIN LAR DEPOT [Suspect]
     Active Substance: OCTREOTIDE ACETATE
     Dosage: 30 MG, QMO (EVERY 4 WEEKS)
     Route: 030
  3. SANDOSTATIN LAR DEPOT [Suspect]
     Active Substance: OCTREOTIDE ACETATE
     Indication: PANCREATITIS CHRONIC
     Dosage: 30 MG, QMO (EVERY 28 DAYS)
     Route: 030
     Dates: start: 20130814

REACTIONS (37)
  - Depression [Not Recovered/Not Resolved]
  - Arthralgia [Unknown]
  - Fatigue [Unknown]
  - Dizziness [Not Recovered/Not Resolved]
  - Abdominal pain [Unknown]
  - Depressed level of consciousness [Unknown]
  - Blood pressure increased [Unknown]
  - Body temperature decreased [Unknown]
  - Abdominal pain upper [Not Recovered/Not Resolved]
  - Myalgia [Unknown]
  - Injection site pain [Recovered/Resolved]
  - Palpitations [Unknown]
  - Hypoaesthesia [Recovered/Resolved]
  - Sleep apnoea syndrome [Unknown]
  - Needle issue [Unknown]
  - Nausea [Unknown]
  - Epistaxis [Unknown]
  - Vision blurred [Not Recovered/Not Resolved]
  - Bronchitis [Unknown]
  - Periumbilical abscess [Unknown]
  - Blood insulin increased [Unknown]
  - Vomiting [Unknown]
  - Intracranial aneurysm [Unknown]
  - Back pain [Not Recovered/Not Resolved]
  - Hepatic enzyme increased [Unknown]
  - Headache [Unknown]
  - Body temperature abnormal [Unknown]
  - Product use in unapproved indication [Unknown]
  - Burnout syndrome [Unknown]
  - Asthenia [Unknown]
  - Cough [Unknown]
  - Nocturnal dyspnoea [Unknown]
  - Suicidal ideation [Unknown]
  - Incision site infection [Unknown]
  - Hyperglycaemia [Unknown]
  - Blood pressure systolic increased [Unknown]
  - Weight decreased [Unknown]

NARRATIVE: CASE EVENT DATE: 20130814
